FAERS Safety Report 7460208-8 (Version None)
Quarter: 2011Q2

REPORT INFORMATION
  Report Type: 
  Country: None (occurrence: None)
  Receive Date: 20110505
  Receipt Date: 20110502
  Transmission Date: 20111010
  Serious: Yes (Hospitalization)
  Sender: FDA-Public Use
  Company Number: IL-ROCHE-773363

PATIENT
  Sex: Female
  Weight: 80 kg

DRUGS (6)
  1. ACYCLOVIR [Concomitant]
     Dates: start: 20110219, end: 20110301
  2. RIBAVIRIN [Suspect]
     Route: 048
  3. RIBAVIRIN [Suspect]
     Dosage: LAST DOSE PRIOR TO SAE: 12 APRIL 2011, PERMANENTLY DISCONTINUED
     Route: 048
     Dates: start: 20110118, end: 20110412
  4. CIPROFLOXACIN [Suspect]
     Route: 065
     Dates: start: 20110324, end: 20110328
  5. PEGINTERFERON ALFA-2A [Suspect]
     Dosage: LAST DOSE PRIOR TO SAE: 07 APRIL 2011, PERMANENTLY DISCONTINUED
     Route: 058
     Dates: start: 20110118, end: 20110412
  6. PEGINTERFERON ALFA-2A [Suspect]
     Route: 058

REACTIONS (1)
  - DIABETIC KETOACIDOSIS [None]
